FAERS Safety Report 22816784 (Version 5)
Quarter: 2023Q4

REPORT INFORMATION
  Report Type: Spontaneous
  Country: US (occurrence: US)
  Receive Date: 20230812
  Receipt Date: 20231005
  Transmission Date: 20240109
  Serious: Yes (Other)
  Sender: FDA-Public Use
  Company Number: US-UNITED THERAPEUTICS-UNT-2023-022207

PATIENT
  Sex: Male
  Weight: 83.81 kg

DRUGS (21)
  1. REMODULIN [Suspect]
     Active Substance: TREPROSTINIL
     Indication: Pulmonary arterial hypertension
     Dosage: 0.00935 ?G/KG (SELF FILL WITH 1.9 ML/CASSETTE; AT PUMP RATE 19MCL/HOUR), CONTINUING
     Route: 058
     Dates: start: 2023
  2. REMODULIN [Suspect]
     Active Substance: TREPROSTINIL
     Dosage: UNK, CONTINUING
     Route: 058
     Dates: start: 20230601
  3. REMODULIN [Suspect]
     Active Substance: TREPROSTINIL
     Indication: Pulmonary arterial hypertension
     Dosage: 0.0031 ?G/KG, CONTINUING
     Route: 041
  4. REMODULIN [Suspect]
     Active Substance: TREPROSTINIL
     Dosage: UNK, CONTINUING
     Route: 041
     Dates: end: 2023
  5. AMBRISENTAN [Concomitant]
     Active Substance: AMBRISENTAN
     Indication: Product used for unknown indication
     Dosage: UNK
     Route: 065
  6. INSULIN DETEMIR [Concomitant]
     Active Substance: INSULIN DETEMIR
     Indication: Type 2 diabetes mellitus
     Dosage: INJECT 30 UNITS INTO SKIN EVERY MORNING (FOR 360 DAYS)
     Route: 065
  7. LIPITOR [Concomitant]
     Active Substance: ATORVASTATIN CALCIUM
     Indication: Blood cholesterol increased
     Dosage: 20 MG (1 TABLET), QD
     Route: 048
  8. ZAROXOLYN [Concomitant]
     Active Substance: METOLAZONE
     Indication: Oedema
     Dosage: 5 MG (1 TABLET), QD FOR 360 DAYS
     Route: 048
  9. K-DUR [Concomitant]
     Active Substance: POTASSIUM CHLORIDE
     Indication: Blood potassium decreased
     Dosage: 20 MEQ (2 TABLETS), BID (WITH MEALS) FOR 360 DAYS
     Route: 048
  10. KLOR-CON [Concomitant]
     Active Substance: POTASSIUM CHLORIDE
     Indication: Blood potassium decreased
     Dosage: 20 MEQ (2 TABLETS), BID (WITH MEALS) FOR 360 DAYS
     Route: 048
  11. ELIQUIS [Concomitant]
     Active Substance: APIXABAN
     Indication: Prophylaxis
     Dosage: 5 MG (1 TABLET), BID FOR 90 DAYS
     Route: 048
  12. LYRICA [Concomitant]
     Active Substance: PREGABALIN
     Indication: Product used for unknown indication
     Dosage: 75 MG (1 CAPSULE), BID
     Route: 065
  13. REVATIO [Concomitant]
     Active Substance: SILDENAFIL CITRATE
     Indication: Pulmonary arterial hypertension
     Dosage: 20 MG (0.5 TABLET), BID FOR 365 DAYS)
     Route: 048
  14. BUMEX [Concomitant]
     Active Substance: BUMETANIDE
     Indication: Oedema
     Dosage: 2 MG (1 TABLET), QD
     Route: 048
  15. MIRALAX [Concomitant]
     Active Substance: POLYETHYLENE GLYCOL 3350
     Indication: Constipation
     Dosage: 17 GRAM (1 SCOOP) MIXED IN CLEAR LIQUID, QD (AS NEEDED)
     Route: 048
  16. SPIRIVA RESPIMAT [Concomitant]
     Active Substance: TIOTROPIUM BROMIDE
     Indication: Bronchitis chronic
     Dosage: 2.5 MCG (2 PUFFS) INTO THE LUNGS, QD
  17. ROCALTROL [Concomitant]
     Active Substance: CALCITRIOL
     Indication: Product used for unknown indication
     Dosage: 0.25 MCG (1 CAPSULE), 2 TIMES/WK
     Route: 048
  18. PRILOSEC [Concomitant]
     Active Substance: OMEPRAZOLE MAGNESIUM
     Indication: Product used for unknown indication
     Dosage: 40 MG (1 CAPSULE), QD (NIGHTLY)
     Route: 065
  19. COLACE [Concomitant]
     Active Substance: DOCUSATE SODIUM
     Indication: Constipation
     Dosage: 100 MG (1 CAPSULE), BID (AS NEEDED)
     Route: 048
  20. TEMOVATE [Concomitant]
     Active Substance: CLOBETASOL PROPIONATE
     Indication: Pruritus
     Dosage: UNK, BID (AS NEEDED)
     Route: 065
  21. VITAMIN B12 [Concomitant]
     Active Substance: CYANOCOBALAMIN
     Indication: Product used for unknown indication
     Dosage: 1000 MCG, Q3MO
     Route: 030

REACTIONS (3)
  - Tricuspid valve incompetence [Unknown]
  - Aortic valve incompetence [Unknown]
  - Scan abnormal [Recovered/Resolved]

NARRATIVE: CASE EVENT DATE: 20230101
